FAERS Safety Report 7602523-0 (Version None)
Quarter: 2011Q3

REPORT INFORMATION
  Report Type: 
  Country: None (occurrence: None)
  Receive Date: 20110701
  Receipt Date: 20110628
  Transmission Date: 20111222
  Serious: Yes (Hospitalization)
  Sender: FDA-Public Use
  Company Number: SP03768

PATIENT
  Age: 30 Year
  Sex: Female
  Weight: 52.1637 kg

DRUGS (2)
  1. HUMIRA [Suspect]
     Dosage: 40 MG, SEE TEXT, SUBCUTANEOUS
     Route: 058
     Dates: start: 20110121, end: 20110415
  2. APRISO [Suspect]
     Indication: COLITIS ULCERATIVE
     Dosage: ORAL
     Route: 048
     Dates: end: 20110415

REACTIONS (16)
  - COLITIS [None]
  - PYREXIA [None]
  - OROPHARYNGEAL PAIN [None]
  - ASTHENIA [None]
  - ARTHRALGIA [None]
  - PNEUMONIA [None]
  - LYMPHADENOPATHY [None]
  - COUGH [None]
  - NASAL CONGESTION [None]
  - PRURITUS [None]
  - HAEMORRHAGE [None]
  - SYSTEMIC LUPUS ERYTHEMATOSUS [None]
  - CHEST PAIN [None]
  - RED BLOOD CELL SEDIMENTATION RATE INCREASED [None]
  - FATIGUE [None]
  - NEPHRITIS [None]
